FAERS Safety Report 15035126 (Version 7)
Quarter: 2019Q1

REPORT INFORMATION
  Report Type: Spontaneous
  Country: US (occurrence: US)
  Receive Date: 20180620
  Receipt Date: 20190124
  Transmission Date: 20190417
  Serious: Yes (Other)
  Sender: FDA-Public Use
  Company Number: US-PFIZER INC-2018249326

PATIENT
  Age: 56 Year
  Sex: Female

DRUGS (2)
  1. IBRANCE [Suspect]
     Active Substance: PALBOCICLIB
     Dosage: 100 MG, CYCLIC (100 MG PO QD X21D, THEN 7D OFF)
     Route: 048
     Dates: end: 20181220
  2. IBRANCE [Suspect]
     Active Substance: PALBOCICLIB
     Dosage: 125 MG, CYCLIC (DAILY X 21 DAYS THEN 7 DAYS OFF)
     Route: 048
     Dates: end: 20180802

REACTIONS (7)
  - Muscle spasms [Unknown]
  - Red blood cell count decreased [Unknown]
  - Immune system disorder [Unknown]
  - Neutropenia [Unknown]
  - Decreased immune responsiveness [Unknown]
  - Sinusitis [Unknown]
  - White blood cell count decreased [Unknown]

NARRATIVE: CASE EVENT DATE: 20180802
